FAERS Safety Report 8033013-1 (Version None)
Quarter: 2012Q1

REPORT INFORMATION
  Report Type: 
  Country: None (occurrence: None)
  Receive Date: 20120110
  Receipt Date: 20120105
  Transmission Date: 20120608
  Serious: Yes (Hospitalization)
  Sender: FDA-Public Use
  Company Number: IT-JNJFOC-20120101526

PATIENT
  Age: 43 Year
  Sex: Male

DRUGS (4)
  1. LEVOFLOXACIN [Suspect]
     Indication: BRONCHITIS
     Route: 048
     Dates: start: 20110712, end: 20110716
  2. AMOXICILLIN TRIHYDRATE [Suspect]
     Indication: BRONCHITIS
     Route: 048
     Dates: start: 20110708, end: 20110710
  3. AMOXICILLIN AND CLAVULANATE POTASSIUM [Suspect]
     Indication: BRONCHITIS
     Route: 048
     Dates: start: 20110710, end: 20110712
  4. ACETAMINOPHEN [Suspect]
     Indication: HYPERTHERMIA
     Route: 048
     Dates: start: 20110708, end: 20110712

REACTIONS (5)
  - ORAL MUCOSAL EXFOLIATION [None]
  - MUCOSAL EROSION [None]
  - PENILE ERYTHEMA [None]
  - ERYTHEMA MULTIFORME [None]
  - RASH ERYTHEMATOUS [None]
